FAERS Safety Report 7164366-4 (Version None)
Quarter: 2010Q4

REPORT INFORMATION
  Report Type: 
  Country: None (occurrence: None)
  Receive Date: 20101215
  Receipt Date: 20101202
  Transmission Date: 20110411
  Serious: No
  Sender: FDA-Public Use
  Company Number: JP-AMGEN-US388233

PATIENT
  Sex: Female
  Weight: 52 kg

DRUGS (16)
  1. DENOSUMAB [Suspect]
     Indication: METASTASES TO BONE
     Dosage: UNK BLINDED, Q4WK
     Route: 058
     Dates: start: 20090730, end: 20100121
  2. DENOSUMAB [Suspect]
     Route: 058
     Dates: start: 20090730, end: 20091218
  3. ZOMETA [Suspect]
     Indication: METASTASES TO BONE
     Route: 041
     Dates: start: 20070614, end: 20080417
  4. TRASTUZUMAB [Concomitant]
     Indication: BREAST CANCER
     Dosage: UNK UNK, UNK
     Route: 041
     Dates: start: 20060609
  5. TYKERB [ INGREDIENT UNKNOWN ] [Concomitant]
     Indication: BREAST CANCER
     Dosage: 1000 MG, QD
     Route: 048
     Dates: start: 20100114
  6. INSULIN ASPART [Concomitant]
     Indication: DIABETES MELLITUS
     Dosage: UNK UNK, BID
     Route: 058
     Dates: start: 20070407
  7. LANDSEN [Concomitant]
     Indication: NEUROPATHY PERIPHERAL
     Dosage: 1 MG, QD
     Route: 048
     Dates: start: 20090226
  8. CALCICHEW D3 [Concomitant]
     Indication: MEDICAL DIET
     Dosage: 2 UNK, QD
     Route: 048
     Dates: start: 20070607, end: 20100121
  9. CALCICHEW D3 [Concomitant]
     Dosage: CA:610MG,VITAMIND3:400IU
     Route: 048
     Dates: start: 20070607, end: 20100121
  10. VINORELBINE [Concomitant]
     Dosage: UNK UNK, UNK
     Dates: start: 20090129, end: 20091126
  11. LOXOPROFEN SODIUM [Concomitant]
     Dosage: UNK UNK, UNK
     Dates: start: 20090711, end: 20090717
  12. HERCEPTIN [Concomitant]
     Indication: BREAST CANCER
     Dosage: UNKNOWN
     Route: 041
     Dates: start: 20070606
  13. NOVORAPID [Concomitant]
     Indication: DIABETES MELLITUS
     Dosage: 10-12U/ONCE
     Route: 058
     Dates: start: 20070407
  14. TEGRETOL [Concomitant]
     Indication: PAIN
     Dosage: AS NEEDED
     Route: 048
     Dates: start: 20100112, end: 20100114
  15. FLOMOX [Concomitant]
     Indication: OSTEONECROSIS
     Route: 048
     Dates: start: 20100107, end: 20100121
  16. LOXONIN [Concomitant]
     Indication: PAIN
     Dosage: AS NEEDED
     Route: 048
     Dates: start: 20100107, end: 20100121

REACTIONS (2)
  - OSTEONECROSIS [None]
  - PERIODONTITIS [None]
